FAERS Safety Report 20618008 (Version 3)
Quarter: 2022Q2

REPORT INFORMATION
  Report Type: Report from Study
  Country: GB (occurrence: GB)
  Receive Date: 20220321
  Receipt Date: 20220615
  Transmission Date: 20220721
  Serious: Yes (Hospitalization)
  Sender: FDA-Public Use
  Company Number: GB-NOVARTISPH-NVSC2022GB037148

PATIENT
  Age: 4 Year
  Sex: Male

DRUGS (1)
  1. ZOLGENSMA [Suspect]
     Active Substance: ONASEMNOGENE ABEPARVOVEC-XIOI
     Indication: Spinal muscular atrophy
     Dosage: UNK, ONCE/SINGLE
     Route: 042
     Dates: start: 20220208, end: 20220208

REACTIONS (10)
  - Diarrhoea [Recovered/Resolved]
  - Tachycardia [Not Recovered/Not Resolved]
  - Nausea [Recovered/Resolved]
  - Nausea [Recovered/Resolved]
  - Discomfort [Not Recovered/Not Resolved]
  - Secretion discharge [Unknown]
  - White blood cell count increased [Not Recovered/Not Resolved]
  - Infection [Not Recovered/Not Resolved]
  - Liver function test increased [Unknown]
  - Pyrexia [Recovered/Resolved]

NARRATIVE: CASE EVENT DATE: 20220212
